FAERS Safety Report 17424196 (Version 2)
Quarter: 2020Q1

REPORT INFORMATION
  Report Type: Spontaneous
  Country: DE (occurrence: DE)
  Receive Date: 20200217
  Receipt Date: 20200306
  Transmission Date: 20200409
  Serious: Yes (Hospitalization, Other)
  Sender: FDA-Public Use
  Company Number: DE-BRISTOL-MYERS SQUIBB COMPANY-BMS-2020-011699

PATIENT
  Age: 38 Year
  Sex: Female
  Weight: 50 kg

DRUGS (4)
  1. YERVOY [Suspect]
     Active Substance: IPILIMUMAB
     Indication: GASTRIC CANCER
     Dosage: UNK
     Route: 065
     Dates: start: 201712
  2. METHYLPREDNISOLONE. [Suspect]
     Active Substance: METHYLPREDNISOLONE
     Indication: HERPES ZOSTER
     Dosage: 100 MILLIGRAM
     Route: 042
     Dates: start: 20181206, end: 20190624
  3. OPDIVO [Suspect]
     Active Substance: NIVOLUMAB
     Indication: PRODUCT USED FOR UNKNOWN INDICATION
     Dosage: 240 MILLIGRAM
     Route: 042
     Dates: start: 201807, end: 20181109
  4. OPDIVO [Suspect]
     Active Substance: NIVOLUMAB
     Indication: GASTRIC CANCER
     Dosage: 3 MILLIGRAM/KILOGRAM
     Route: 042
     Dates: start: 20171201, end: 20180202

REACTIONS (4)
  - Intentional product use issue [Unknown]
  - Autoimmune dermatitis [Not Recovered/Not Resolved]
  - Addison^s disease [Not Recovered/Not Resolved]
  - Herpes zoster [Recovered/Resolved]

NARRATIVE: CASE EVENT DATE: 20180819
